FAERS Safety Report 23059827 (Version 2)
Quarter: 2023Q4

REPORT INFORMATION
  Report Type: Spontaneous
  Country: US (occurrence: US)
  Receive Date: 20231012
  Receipt Date: 20231023
  Transmission Date: 20240110
  Serious: Yes (Life-Threatening, Hospitalization)
  Sender: FDA-Public Use
  Company Number: US-TEVA-2023-US-2933159

PATIENT
  Age: 67 Year
  Sex: Male

DRUGS (1)
  1. GLIPIZIDE [Suspect]
     Active Substance: GLIPIZIDE
     Indication: Drug abuse
     Dosage: PILL
     Route: 048

REACTIONS (3)
  - Hypoglycaemia [Recovered/Resolved]
  - Intentional overdose [Unknown]
  - Drug abuse [Unknown]
